FAERS Safety Report 17918165 (Version 3)
Quarter: 2022Q1

REPORT INFORMATION
  Report Type: Spontaneous
  Country: GB (occurrence: GB)
  Receive Date: 20200619
  Receipt Date: 20220118
  Transmission Date: 20220423
  Serious: Yes (Life-Threatening, Disabling)
  Sender: FDA-Public Use
  Company Number: None

PATIENT
  Age: 74 Year
  Sex: Female

DRUGS (2)
  1. RISPERDAL [Suspect]
     Active Substance: RISPERIDONE
     Indication: Emotional distress
     Route: 065
     Dates: start: 2014, end: 2014
  2. RISPERDAL [Suspect]
     Active Substance: RISPERIDONE
     Indication: Stress

REACTIONS (6)
  - Dizziness [Unknown]
  - Balance disorder [Unknown]
  - Rash [Recovered/Resolved]
  - Urine analysis abnormal [Recovered/Resolved]
  - Abnormal weight gain [Unknown]
  - Drug intolerance [Unknown]
